FAERS Safety Report 7443656-1 (Version None)
Quarter: 2011Q2

REPORT INFORMATION
  Report Type: 
  Country: None (occurrence: None)
  Receive Date: 20110428
  Receipt Date: 20110421
  Transmission Date: 20111010
  Serious: Yes (Other)
  Sender: FDA-Public Use
  Company Number: JP-ROCHE-773613

PATIENT
  Sex: Male

DRUGS (16)
  1. TOCILIZUMAB [Suspect]
     Route: 041
     Dates: start: 20090108, end: 20090108
  2. TOCILIZUMAB [Suspect]
     Route: 041
     Dates: start: 20090501, end: 20090501
  3. ARTIST [Concomitant]
     Route: 048
  4. PARIET [Concomitant]
     Route: 048
  5. PYDOXAL [Concomitant]
     Route: 048
  6. TOCILIZUMAB [Suspect]
     Route: 041
     Dates: start: 20090618, end: 20090618
  7. PREDONINE [Concomitant]
     Route: 048
     Dates: start: 20090206
  8. TOCILIZUMAB [Suspect]
     Route: 041
     Dates: start: 20090402, end: 20090402
  9. TOCILIZUMAB [Suspect]
     Route: 041
     Dates: start: 20090521, end: 20090521
  10. ISONIAZID [Concomitant]
     Route: 048
     Dates: start: 20081017
  11. ACTONEL [Concomitant]
     Route: 048
     Dates: start: 20090206
  12. TOCILIZUMAB [Suspect]
     Indication: RHEUMATOID ARTHRITIS
     Route: 041
     Dates: start: 20081113, end: 20081113
  13. TOCILIZUMAB [Suspect]
     Route: 041
     Dates: start: 20081211, end: 20081211
  14. TOCILIZUMAB [Suspect]
     Route: 041
     Dates: start: 20090205, end: 20090205
  15. TOCILIZUMAB [Suspect]
     Route: 041
     Dates: start: 20090305, end: 20090305
  16. CELCOX [Concomitant]
     Route: 048

REACTIONS (1)
  - RADIUS FRACTURE [None]
